FAERS Safety Report 13321002 (Version 3)
Quarter: 2017Q2

REPORT INFORMATION
  Report Type: Spontaneous
  Country: US (occurrence: US)
  Receive Date: 20170309
  Receipt Date: 20170521
  Transmission Date: 20170830
  Serious: No
  Sender: FDA-Public Use
  Company Number: US-009507513-1702USA004169

PATIENT
  Age: 39 Year
  Sex: Female
  Weight: 113.38 kg

DRUGS (1)
  1. IMPLANON [Suspect]
     Active Substance: ETONOGESTREL
     Dosage: 1 SINGLE ROD IMPLANT
     Route: 059
     Dates: start: 20140130, end: 20170207

REACTIONS (4)
  - No adverse event [Unknown]
  - Incorrect drug administration duration [Unknown]
  - Device kink [Recovered/Resolved]
  - Device breakage [Recovered/Resolved]

NARRATIVE: CASE EVENT DATE: 20170131
